FAERS Safety Report 4681547-X (Version None)
Quarter: 2005Q2

REPORT INFORMATION
  Report Type: 
  Country: None (occurrence: None)
  Receive Date: 20050603
  Receipt Date: 20050523
  Transmission Date: 20051028
  Serious: Yes (Hospitalization, Other)
  Sender: FDA-Public Use
  Company Number: US-GLAXOSMITHKLINE-A0559701A

PATIENT
  Age: 76 Year
  Sex: Male
  Weight: 100 kg

DRUGS (5)
  1. ECOTRIN ADULT LOW STRENGTH TABLETS [Suspect]
     Dosage: 81MG PER DAY
     Route: 048
     Dates: start: 19930101
  2. GLUCOPHAGE [Concomitant]
     Route: 048
  3. GLIPIZIDE [Concomitant]
     Route: 048
  4. LIPITOR [Concomitant]
     Indication: BLOOD CHOLESTEROL INCREASED
     Route: 048
  5. BENICAR [Concomitant]

REACTIONS (6)
  - ASTHENIA [None]
  - BRADYCARDIA [None]
  - CORONARY ARTERY OCCLUSION [None]
  - DYSPNOEA [None]
  - MALAISE [None]
  - RENAL IMPAIRMENT [None]
